FAERS Safety Report 7197818-1 (Version None)
Quarter: 2010Q4

REPORT INFORMATION
  Report Type: 
  Country: None (occurrence: None)
  Receive Date: 20101214
  Receipt Date: 20101201
  Transmission Date: 20110411
  Serious: Yes (Hospitalization)
  Sender: FDA-Public Use
  Company Number: AMAG201000397

PATIENT
  Age: 54 Year
  Sex: Female
  Weight: 68.9 kg

DRUGS (12)
  1. FERAHEME [Suspect]
     Indication: CROHN'S DISEASE
     Dosage: 510 MG, SINGLE, INTRAVENOUS
     Route: 042
     Dates: start: 20100714, end: 20100714
  2. FERAHEME [Suspect]
     Indication: IRON DEFICIENCY ANAEMIA
     Dosage: 510 MG, SINGLE, INTRAVENOUS
     Route: 042
     Dates: start: 20100714, end: 20100714
  3. FERAHEME [Suspect]
     Indication: CROHN'S DISEASE
     Dosage: 510 MG, SINGLE, INTRAVENOUS
     Route: 042
     Dates: start: 20100722, end: 20100722
  4. FERAHEME [Suspect]
     Indication: IRON DEFICIENCY ANAEMIA
     Dosage: 510 MG, SINGLE, INTRAVENOUS
     Route: 042
     Dates: start: 20100722, end: 20100722
  5. FERAHEME [Suspect]
     Indication: CROHN'S DISEASE
     Dosage: 510 MG, SINGLE, INTRAVENOUS
     Route: 042
     Dates: start: 20101022, end: 20101022
  6. FERAHEME [Suspect]
     Indication: IRON DEFICIENCY ANAEMIA
     Dosage: 510 MG, SINGLE, INTRAVENOUS
     Route: 042
     Dates: start: 20101022, end: 20101022
  7. KLONOPIN [Concomitant]
  8. NEURONTIN [Concomitant]
  9. NEXIUM (ESOMEPRAZOLE SODIUM) CAPSULE [Concomitant]
  10. ASACOL [Concomitant]
  11. SKELAXIN [Concomitant]
  12. TRAMADOL HCL [Concomitant]

REACTIONS (12)
  - ARTHRALGIA [None]
  - COLD SWEAT [None]
  - CONDITION AGGRAVATED [None]
  - CROHN'S DISEASE [None]
  - DYSSTASIA [None]
  - FLUSHING [None]
  - HEADACHE [None]
  - HYPERHIDROSIS [None]
  - HYPOTENSION [None]
  - INFLUENZA LIKE ILLNESS [None]
  - LOCAL SWELLING [None]
  - MUSCLE SPASMS [None]
